FAERS Safety Report 7375297-9 (Version None)
Quarter: 2011Q1

REPORT INFORMATION
  Report Type: 
  Country: None (occurrence: None)
  Receive Date: 20110325
  Receipt Date: 20110315
  Transmission Date: 20110831
  Serious: Yes (Other)
  Sender: FDA-Public Use
  Company Number: GR-ACTELION-A-CH2011-46339

PATIENT
  Age: 41 Year
  Sex: Female

DRUGS (6)
  1. CAPTOPRIL [Concomitant]
  2. PARACETAMOL [Concomitant]
  3. TRACLEER [Suspect]
     Indication: PULMONARY ARTERIAL HYPERTENSION
     Dosage: 62.5 MG, BID
     Route: 048
  4. FOLIC ACID [Concomitant]
  5. TRACLEER [Suspect]
     Dosage: 125 MG, BID
     Route: 048
  6. FERROUS FUMARATE [Concomitant]

REACTIONS (2)
  - VISUAL ACUITY REDUCED [None]
  - RETINOPATHY HYPERTENSIVE [None]
